FAERS Safety Report 6626180-5 (Version None)
Quarter: 2010Q1

REPORT INFORMATION
  Report Type: 
  Country: None (occurrence: None)
  Receive Date: 20100310
  Receipt Date: 20100304
  Transmission Date: 20100710
  Serious: Yes (Other)
  Sender: FDA-Public Use
  Company Number: PHEH2010US02902

PATIENT
  Sex: Male

DRUGS (4)
  1. EXELON [Suspect]
     Dosage: 4.6 MG, UNK
  2. EXELON [Suspect]
     Dosage: 9.5 MG, UNK
     Dates: start: 20100303
  3. LISINOPRIL [Concomitant]
  4. COUMADIN [Concomitant]
     Indication: BLOOD CHOLESTEROL ABNORMAL
     Dosage: UNK, UNK
     Route: 065

REACTIONS (3)
  - CRYING [None]
  - DEPRESSED MOOD [None]
  - IMPLANTABLE DEFIBRILLATOR INSERTION [None]
